FAERS Safety Report 16369427 (Version 2)
Quarter: 2019Q3

REPORT INFORMATION
  Report Type: Report from Study
  Country: JP (occurrence: JP)
  Receive Date: 20190529
  Receipt Date: 20190904
  Transmission Date: 20191004
  Serious: Yes (Other)
  Sender: FDA-Public Use
  Company Number: JP-BEH-2019102875

PATIENT
  Age: 75 Year
  Sex: Female
  Weight: 40 kg

DRUGS (7)
  1. WARFARIN                           /00014803/ [Concomitant]
     Active Substance: WARFARIN
     Indication: AORTIC VALVE STENOSIS
     Dosage: 1 MG, QD
     Route: 048
     Dates: start: 20180524, end: 20180726
  2. KAYTWO N [Concomitant]
     Active Substance: MENATETRENONE
     Indication: PROCOAGULANT THERAPY
     Dosage: 10 MG, TOT
     Route: 065
     Dates: start: 20180727, end: 20180727
  3. ALCOHOL PAD [Suspect]
     Active Substance: ISOPROPYL ALCOHOL
     Indication: SURGERY
     Dosage: 1000 IU, TOT
     Route: 042
     Dates: start: 20180726
  4. BERIPLEX P/N [Suspect]
     Active Substance: COAGULATION FACTOR IX HUMAN\COAGULATION FACTOR VII HUMAN\COAGULATION FACTOR X HUMAN\PROTEIN C\PROTEIN S HUMAN\PROTHROMBIN
     Indication: SURGERY
     Dosage: 1000 IU, TOT
     Route: 042
     Dates: start: 20180726
  5. ALCOHOL PAD [Suspect]
     Active Substance: ISOPROPYL ALCOHOL
     Indication: THERAPEUTIC PROCEDURE
  6. BERIPLEX P/N [Suspect]
     Active Substance: COAGULATION FACTOR IX HUMAN\COAGULATION FACTOR VII HUMAN\COAGULATION FACTOR X HUMAN\PROTEIN C\PROTEIN S HUMAN\PROTHROMBIN
     Indication: THERAPEUTIC PROCEDURE
  7. NORADRENALINE                      /00127501/ [Concomitant]
     Active Substance: NOREPINEPHRINE
     Indication: SEPSIS
     Dosage: UNK
     Route: 065
     Dates: start: 20180726, end: 20180805

REACTIONS (4)
  - Tachycardia paroxysmal [Recovering/Resolving]
  - Hepatic function abnormal [Recovering/Resolving]
  - Gastritis [Recovering/Resolving]
  - Lower respiratory tract infection [Recovering/Resolving]

NARRATIVE: CASE EVENT DATE: 20180727
